FAERS Safety Report 20039580 (Version 2)
Quarter: 2021Q4

REPORT INFORMATION
  Report Type: Spontaneous
  Country: US (occurrence: US)
  Receive Date: 20211106
  Receipt Date: 20211123
  Transmission Date: 20220303
  Serious: No
  Sender: FDA-Public Use
  Company Number: US-009507513-2110USA004968

PATIENT
  Age: 90 Year
  Sex: Female

DRUGS (3)
  1. KEYTRUDA [Suspect]
     Active Substance: PEMBROLIZUMAB
     Indication: Small cell lung cancer
     Dosage: FIRST TREATMENT
     Route: 042
     Dates: start: 20211006
  2. TYLENOL [Concomitant]
     Active Substance: ACETAMINOPHEN
     Dosage: AS NEEDED
  3. IMATINIB [Concomitant]
     Active Substance: IMATINIB
     Dosage: 400 MG, TWICE DAILY

REACTIONS (3)
  - Pain in extremity [Not Recovered/Not Resolved]
  - Tooth infection [Not Recovered/Not Resolved]
  - Product use in unapproved indication [Unknown]

NARRATIVE: CASE EVENT DATE: 20211001
